FAERS Safety Report 17729669 (Version 1)
Quarter: 2020Q2

REPORT INFORMATION
  Report Type: Spontaneous
  Country: ES (occurrence: ES)
  Receive Date: 20200430
  Receipt Date: 20200430
  Transmission Date: 20200714
  Serious: Yes (Death)
  Sender: FDA-Public Use
  Company Number: ES-PFIZER INC-2020171686

PATIENT
  Age: 65 Year
  Sex: Female

DRUGS (4)
  1. HYDROXYCHLOROQUINE SULFATE. [Suspect]
     Active Substance: HYDROXYCHLOROQUINE SULFATE
     Indication: CORONAVIRUS INFECTION
     Dosage: 200 MG, 1X/DAY
     Route: 048
     Dates: start: 20200331, end: 20200402
  2. CEFTRIAXON [Concomitant]
     Active Substance: CEFTRIAXONE
     Indication: PNEUMONIA
     Dosage: 1 G, 1X/DAY
     Route: 042
     Dates: start: 20200330, end: 20200402
  3. AZITHROMYCIN ANHYDROUS. [Suspect]
     Active Substance: AZITHROMYCIN ANHYDROUS
     Indication: CORONAVIRUS INFECTION
     Dosage: 500 MG, 1X/DAY
     Route: 048
     Dates: start: 20200330, end: 20200401
  4. TOCILIZUMAB. [Concomitant]
     Active Substance: TOCILIZUMAB
     Indication: CORONAVIRUS INFECTION
     Dosage: UNK
     Route: 042
     Dates: start: 20200331, end: 20200331

REACTIONS (4)
  - Product use in unapproved indication [Unknown]
  - Cardiogenic shock [Fatal]
  - Off label use [Unknown]
  - Tachyarrhythmia [Fatal]

NARRATIVE: CASE EVENT DATE: 20200330
